FAERS Safety Report 8801679 (Version 2)
Quarter: 2012Q4

REPORT INFORMATION
  Report Type: 
  Country: AR (occurrence: AR)
  Receive Date: 20120921
  Receipt Date: 20121015
  Transmission Date: 20130627
  Serious: Yes (Other)
  Sender: FDA-Public Use
  Company Number: AR-ROCHE-1132892

PATIENT
  Age: 65 Year
  Sex: Male

DRUGS (3)
  1. RITUXIMAB [Suspect]
     Indication: CHRONIC LYMPHOCYTIC LEUKAEMIA
     Route: 042
  2. FLUDARABINE [Concomitant]
     Indication: CHRONIC LYMPHOCYTIC LEUKAEMIA
     Route: 042
  3. CYCLOPHOSPHAMIDE [Concomitant]
     Indication: CHRONIC LYMPHOCYTIC LEUKAEMIA
     Route: 042

REACTIONS (4)
  - Radiculopathy [Not Recovered/Not Resolved]
  - Muscular weakness [Not Recovered/Not Resolved]
  - Respiratory distress [Unknown]
  - Eyelid ptosis [Not Recovered/Not Resolved]
